FAERS Safety Report 12597256 (Version 1)
Quarter: 2016Q3

REPORT INFORMATION
  Report Type: Report from Study
  Country: DE (occurrence: DE)
  Receive Date: 20160727
  Receipt Date: 20160727
  Transmission Date: 20161109
  Serious: Yes (Other)
  Sender: FDA-Public Use
  Company Number: DE-ROCHE-1802208

PATIENT
  Sex: Female
  Weight: 85 kg

DRUGS (1)
  1. TOCILIZUMAB [Suspect]
     Active Substance: TOCILIZUMAB
     Indication: RHEUMATOID ARTHRITIS
     Route: 042
     Dates: start: 20140317

REACTIONS (2)
  - Comminuted fracture [Recovering/Resolving]
  - Radius fracture [Recovering/Resolving]

NARRATIVE: CASE EVENT DATE: 20150703
